FAERS Safety Report 8711583 (Version 2)
Quarter: 2012Q4

REPORT INFORMATION
  Report Type: 
  Country: ES (occurrence: ES)
  Receive Date: 20120807
  Receipt Date: 20120829
  Transmission Date: 20130627
  Serious: Yes (Other)
  Sender: FDA-Public Use
  Company Number: ES-WATSON-2012-13377

PATIENT
  Age: 19 Year
  Sex: Female

DRUGS (2)
  1. HYDROXYCHLOROQUINE SULFATE (WATSON LABORATORIES) [Suspect]
     Indication: AUTOIMMUNE DISORDER
     Dosage: UNK
     Route: 065
  2. RIFAMPICIN [Suspect]
     Indication: AUTOIMMUNE DISORDER
     Dosage: UNK
     Route: 065

REACTIONS (10)
  - Toxic skin eruption [Recovered/Resolved]
  - Condition aggravated [Recovered/Resolved]
  - Autoimmune disorder [Recovered/Resolved]
  - Drug interaction [Recovered/Resolved]
  - Pleural effusion [Recovered/Resolved]
  - Lymphadenopathy [Recovered/Resolved]
  - Leukopenia [Recovered/Resolved]
  - Anaemia [Recovered/Resolved]
  - Renal failure acute [Recovered/Resolved]
  - Klebsiella infection [Recovered/Resolved]
